FAERS Safety Report 23550499 (Version 1)
Quarter: 2024Q1

REPORT INFORMATION
  Report Type: Spontaneous
  Country: FR (occurrence: FR)
  Receive Date: 20240221
  Receipt Date: 20240221
  Transmission Date: 20240409
  Serious: Yes (Hospitalization, Other)
  Sender: FDA-Public Use
  Company Number: None

PATIENT
  Age: 39 Year
  Sex: Male
  Weight: 78 kg

DRUGS (8)
  1. NALTREXONE [Suspect]
     Active Substance: NALTREXONE
     Indication: Product used for unknown indication
     Dosage: UNK
     Route: 065
     Dates: start: 20230612, end: 20230612
  2. QUETIAPINE [Suspect]
     Active Substance: QUETIAPINE
     Indication: Product used for unknown indication
     Dosage: 300 MILLIGRAM (QUETIAPINE EXTENDED RELEASE 300 MG, UNKNOWN QUANTITY)
     Route: 048
     Dates: start: 20230612, end: 20230612
  3. ZOPICLONE [Suspect]
     Active Substance: ZOPICLONE
     Indication: Product used for unknown indication
     Dosage: UNKNOWN
     Route: 048
     Dates: start: 20230612, end: 20230612
  4. PAROXETINE [Suspect]
     Active Substance: PAROXETINE
     Indication: Product used for unknown indication
     Dosage: 20 MILLIGRAM (PAROXETINE 20 MG, UNKNOWN QUANTITY)
     Route: 048
     Dates: start: 20230612, end: 20230612
  5. LOXAPINE [Suspect]
     Active Substance: LOXAPINE
     Indication: Product used for unknown indication
     Dosage: 100 MILLIGRAM (LOXAPAC 100 MG, UNKNOWN QUANTITY)
     Route: 048
     Dates: start: 20230612, end: 20230612
  6. METHADONE [Suspect]
     Active Substance: METHADONE HYDROCHLORIDE
     Indication: Product used for unknown indication
     Dosage: 70 MILLIGRAM (METHADONE 70 MG, UNKNOWN QUANTITY)
     Route: 048
     Dates: start: 20230612, end: 20230612
  7. OXAZEPAM [Suspect]
     Active Substance: OXAZEPAM
     Indication: Product used for unknown indication
     Dosage: UNKNOWN
     Route: 048
     Dates: start: 20230612, end: 20230612
  8. COCAINE [Suspect]
     Active Substance: COCAINE
     Indication: Product used for unknown indication
     Dosage: UNKNOWN
     Route: 065
     Dates: start: 20230612, end: 20230612

REACTIONS (3)
  - Serotonin syndrome [Recovered/Resolved]
  - Poisoning deliberate [Unknown]
  - Drug abuse [Recovered/Resolved]

NARRATIVE: CASE EVENT DATE: 20230612
